FAERS Safety Report 9695338 (Version 1)
Quarter: 2013Q4

REPORT INFORMATION
  Report Type: Spontaneous
  Country: FR (occurrence: FR)
  Receive Date: 20131119
  Receipt Date: 20131119
  Transmission Date: 20140711
  Serious: Yes (Other)
  Sender: FDA-Public Use
  Company Number: FR-SA-2013SA118690

PATIENT
  Age: 74 Year
  Sex: Male

DRUGS (15)
  1. RIFAMPICIN [Suspect]
     Indication: PRODUCT USED FOR UNKNOWN INDICATION
     Route: 065
  2. CORDARONE [Suspect]
     Indication: PRODUCT USED FOR UNKNOWN INDICATION
     Route: 065
  3. LOVENOX [Concomitant]
     Indication: ATRIAL FIBRILLATION
     Dosage: STRNGTH: 6000IU
     Route: 058
     Dates: start: 20130530, end: 20130801
  4. KARDEGIC [Concomitant]
     Route: 048
     Dates: start: 2012
  5. VANCOMYCINE [Concomitant]
     Indication: ENDOCARDITIS
  6. LASILIX [Concomitant]
     Dosage: STRENGTH: 40MG
     Route: 048
     Dates: start: 2012
  7. TAHOR [Concomitant]
     Dosage: STRENGTH: 10MG
     Route: 048
     Dates: start: 2012
  8. BISOPROLOL [Concomitant]
     Dosage: STRENGTH: 10MG
     Route: 048
     Dates: start: 2012
  9. EUPANTOL [Concomitant]
     Dosage: STRENGTH: 20MG
     Route: 048
     Dates: start: 2012
  10. TRIATEC [Concomitant]
     Dosage: STRENGTH: 5MG
     Route: 048
     Dates: start: 2012
  11. DEROXAT [Concomitant]
     Dosage: STRENGTH: 20MG/10ML
     Route: 048
  12. SPASFON [Concomitant]
  13. TRANXENE [Concomitant]
     Dosage: STRENGTH: 10MG
  14. DAFALGAN [Concomitant]
  15. PLAVIX [Concomitant]
     Dates: start: 20130616

REACTIONS (1)
  - Liver injury [Recovered/Resolved]
